FAERS Safety Report 7629197-7 (Version None)
Quarter: 2011Q3

REPORT INFORMATION
  Report Type: 
  Country: None (occurrence: None)
  Receive Date: 20110722
  Receipt Date: 20110713
  Transmission Date: 20111222
  Serious: Yes (Other)
  Sender: FDA-Public Use
  Company Number: PHHY2011AU46760

PATIENT
  Sex: Female
  Weight: 88 kg

DRUGS (5)
  1. ZOMETA [Suspect]
     Dosage: 4 MG, 6 MONTHLY
     Route: 042
     Dates: start: 20100928
  2. ARIMIDEX [Concomitant]
     Indication: BREAST CANCER
     Dosage: 1 MG, UNK
     Dates: start: 20110112
  3. NEXIUM [Concomitant]
     Indication: GASTROOESOPHAGEAL REFLUX DISEASE
     Dosage: 40 MG, UNK
     Route: 048
  4. PERINDOPRIL ERBUMINE [Concomitant]
     Indication: HYPERTENSION
     Dosage: 1 MG, UNK
     Route: 048
  5. ZOMETA [Suspect]
     Indication: BREAST CANCER
     Dosage: 4 MG, 6 MONTHLY
     Route: 042
     Dates: start: 20100413

REACTIONS (3)
  - IMPLANT SITE REACTION [None]
  - OSTEONECROSIS OF JAW [None]
  - PAIN IN JAW [None]
